FAERS Safety Report 14502127 (Version 1)
Quarter: 2018Q1

REPORT INFORMATION
  Report Type: Spontaneous
  Country: JP (occurrence: JP)
  Receive Date: 20180208
  Receipt Date: 20180208
  Transmission Date: 20180509
  Serious: Yes (Other)
  Sender: FDA-Public Use
  Company Number: JP-ROCHE-2040976

PATIENT
  Age: 56 Year
  Sex: Male
  Weight: 74 kg

DRUGS (14)
  1. CALCIUM LEVOFOLINATE [Concomitant]
     Active Substance: LEVOLEUCOVORIN CALCIUM
     Route: 041
     Dates: start: 20160909, end: 20161007
  2. TRAMAL [Concomitant]
     Active Substance: TRAMADOL
     Route: 065
     Dates: start: 20160630, end: 20170106
  3. OXALIPLATIN. [Concomitant]
     Active Substance: OXALIPLATIN
     Indication: COLON CANCER STAGE IV
  4. FLUOROURACIL. [Concomitant]
     Active Substance: FLUOROURACIL
     Indication: COLON CANCER
     Route: 040
     Dates: start: 20160401, end: 20160826
  5. FLUOROURACIL. [Concomitant]
     Active Substance: FLUOROURACIL
     Indication: COLON CANCER
     Route: 040
     Dates: start: 20160909, end: 20161007
  6. AVASTIN [Suspect]
     Active Substance: BEVACIZUMAB
     Indication: COLON CANCER
     Route: 041
     Dates: start: 20160909, end: 20161007
  7. IRINOTECAN HYDROCHLORIDE. [Concomitant]
     Active Substance: IRINOTECAN HYDROCHLORIDE
     Indication: COLON CANCER
     Route: 041
     Dates: start: 20160401, end: 20160826
  8. IRINOTECAN HYDROCHLORIDE. [Concomitant]
     Active Substance: IRINOTECAN HYDROCHLORIDE
     Route: 041
     Dates: start: 20160909, end: 20161007
  9. FLUOROURACIL. [Concomitant]
     Active Substance: FLUOROURACIL
     Route: 041
     Dates: start: 20160909, end: 20161007
  10. FLOMOX (JAPAN) [Concomitant]
     Active Substance: CEFCAPENE PIVOXIL HYDROCHLORIDE HYDRATE
     Route: 065
     Dates: start: 20161014, end: 20161020
  11. CALCIUM LEVOFOLINATE [Concomitant]
     Active Substance: LEVOLEUCOVORIN CALCIUM
     Indication: COLON CANCER
     Route: 041
     Dates: start: 20160401, end: 20160826
  12. PENTASA [Concomitant]
     Active Substance: MESALAMINE
     Route: 065
     Dates: start: 2003
  13. EBASTEL [Concomitant]
     Active Substance: EBASTINE
     Route: 048
     Dates: start: 20160331, end: 20161021
  14. SODIUM FERROUS CITRATE [Concomitant]
     Active Substance: SODIUM FERROUS CITRATE
     Route: 048
     Dates: start: 20160428, end: 20161021

REACTIONS (3)
  - Large intestine perforation [Recovering/Resolving]
  - Tumour necrosis [Unknown]
  - Subcutaneous abscess [Recovering/Resolving]

NARRATIVE: CASE EVENT DATE: 20161014
